FAERS Safety Report 4893511-6 (Version None)
Quarter: 2006Q1

REPORT INFORMATION
  Report Type: 
  Country: None (occurrence: None)
  Receive Date: 20060125
  Receipt Date: 20060125
  Transmission Date: 20060701
  Serious: Yes (Hospitalization)
  Sender: FDA-Public Use
  Company Number: None

PATIENT
  Sex: Male
  Weight: 82 kg

DRUGS (5)
  1. CYCLOPHOSPHAMIDE [Suspect]
     Indication: BURKITT'S LYMPHOMA
     Dosage: SEE IMAGE
     Route: 042
     Dates: start: 20060113
  2. CYCLOPHOSPHAMIDE [Suspect]
     Indication: LEUKAEMIA
     Dosage: SEE IMAGE
     Route: 042
     Dates: start: 20060113
  3. CYCLOPHOSPHAMIDE [Suspect]
     Indication: BURKITT'S LYMPHOMA
     Dosage: SEE IMAGE
     Route: 042
     Dates: start: 20060117
  4. CYCLOPHOSPHAMIDE [Suspect]
     Indication: LEUKAEMIA
     Dosage: SEE IMAGE
     Route: 042
     Dates: start: 20060117
  5. DOXORUBICIN HCL [Suspect]
     Dosage: SEE IMAGE

REACTIONS (2)
  - MENTAL STATUS CHANGES [None]
  - UNRESPONSIVE TO VERBAL STIMULI [None]
